FAERS Safety Report 17983680 (Version 2)
Quarter: 2021Q1

REPORT INFORMATION
  Report Type: Other
  Country: CA (occurrence: CA)
  Receive Date: 20200706
  Receipt Date: 20210119
  Transmission Date: 20210419
  Serious: Yes (Hospitalization)
  Sender: FDA-Public Use
  Company Number: CA-ROCHE-2346050

PATIENT
  Age: 52 Year
  Sex: Female

DRUGS (3)
  1. OCREVUS [Suspect]
     Active Substance: OCRELIZUMAB
     Indication: RELAPSING-REMITTING MULTIPLE SCLEROSIS
     Dosage: 300 MG AT DAY 0 AND 14, THEN 600 MG EVERY 6 MONTH?FORM STRENGTH: 300MG/10ML
     Route: 042
     Dates: start: 20190612
  2. AMOXICILLIN. [Concomitant]
     Active Substance: AMOXICILLIN
     Indication: INFECTION
     Dates: start: 20190627
  3. OCREVUS [Suspect]
     Active Substance: OCRELIZUMAB
     Route: 042
     Dates: start: 20190612

REACTIONS (12)
  - Lower respiratory tract infection [Unknown]
  - Ear pain [Unknown]
  - Eye infection [Recovered/Resolved]
  - Fatigue [Unknown]
  - Productive cough [Unknown]
  - Pharyngitis [Recovered/Resolved]
  - Cough [Not Recovered/Not Resolved]
  - Pneumonia [Recovering/Resolving]
  - Influenza [Recovered/Resolved]
  - Ear infection [Recovered/Resolved]
  - Sinusitis [Recovered/Resolved]
  - Acne [Not Recovered/Not Resolved]

NARRATIVE: CASE EVENT DATE: 20200108
